FAERS Safety Report 8082712-4 (Version None)
Quarter: 2012Q1

REPORT INFORMATION
  Report Type: 
  Country: None (occurrence: None)
  Receive Date: 20120127
  Receipt Date: 20110301
  Transmission Date: 20120608
  Serious: No
  Sender: FDA-Public Use
  Company Number: US-ABBOTT-11P-163-0708360-00

PATIENT
  Age: 59 Year
  Sex: Female

DRUGS (12)
  1. LANOXIN [Concomitant]
     Indication: CARDIAC DISORDER
  2. PREMARIN [Concomitant]
     Indication: PRODUCT USED FOR UNKNOWN INDICATION
  3. MEGARED/OMEGA 3 FISH OIL [Concomitant]
     Indication: PRODUCT USED FOR UNKNOWN INDICATION
     Dosage: DAILY
  4. HUMIRA [Suspect]
     Indication: CROHN'S DISEASE
     Dates: start: 20080101
  5. VITAMIN D [Concomitant]
     Indication: PRODUCT USED FOR UNKNOWN INDICATION
     Dosage: DAILY
  6. TOPROL-XL [Concomitant]
     Indication: CARDIAC DISORDER
  7. SIMVASTATIN [Concomitant]
     Indication: BLOOD CHOLESTEROL
  8. BABY ASP [Concomitant]
     Indication: CARDIAC DISORDER
     Dosage: DAILY
  9. TRICOR [Concomitant]
     Indication: BLOOD TRIGLYCERIDES
  10. ASACOL [Concomitant]
     Indication: CROHN'S DISEASE
  11. XANAX [Concomitant]
     Indication: ANXIETY
  12. TRIAMTERENCE HCTZ [Concomitant]
     Indication: BLOOD PRESSURE

REACTIONS (3)
  - INJECTION SITE HAEMORRHAGE [None]
  - INJECTION SITE ERYTHEMA [None]
  - INJECTION SITE PAIN [None]
